FAERS Safety Report 7114398-7 (Version None)
Quarter: 2010Q4

REPORT INFORMATION
  Report Type: 
  Country: None (occurrence: None)
  Receive Date: 20101119
  Receipt Date: 20101105
  Transmission Date: 20110411
  Serious: Yes (Hospitalization, Other)
  Sender: FDA-Public Use
  Company Number: FR-ELI_LILLY_AND_COMPANY-FR201009001440

PATIENT
  Age: 44 Year
  Sex: Male

DRUGS (11)
  1. ZYPADHERA [Suspect]
     Indication: SCHIZOPHRENIA
     Dosage: 405 MG, EVERY 4 WEEKS
     Route: 030
     Dates: start: 20100819, end: 20100920
  2. ZYPADHERA [Suspect]
     Dosage: 300 MG, EVERY 2 WEEKS
     Route: 030
     Dates: start: 20101009
  3. ZYPREXA [Suspect]
     Indication: SCHIZOPHRENIA
     Dosage: 20 MG, DAILY (1/D)
     Route: 048
     Dates: end: 20100819
  4. GLYBURIDE [Concomitant]
     Indication: DIABETES MELLITUS
     Dosage: UNK, UNKNOWN
     Route: 048
  5. GLUCOPHAGE [Concomitant]
     Indication: DIABETES MELLITUS
     Dosage: 500 MG, UNKNOWN
     Route: 048
  6. TENORMIN [Concomitant]
     Dosage: 100 MG, UNKNOWN
     Route: 048
  7. XANAX [Concomitant]
     Indication: SCHIZOPHRENIA
     Dosage: UNK, UNKNOWN
     Route: 048
     Dates: end: 20101004
  8. SERESTA [Concomitant]
     Indication: ANXIETY
     Dosage: UNK, UNKNOWN
     Route: 048
     Dates: start: 20101004
  9. PRAVASTATIN [Concomitant]
     Dosage: UNK, UNKNOWN
     Route: 048
  10. DEROXAT [Concomitant]
     Dosage: UNK, UNKNOWN
     Route: 048
     Dates: start: 20101004
  11. IMOVANE [Concomitant]
     Dosage: UNK, UNKNOWN
     Route: 048
     Dates: start: 20101004

REACTIONS (9)
  - ALTERED STATE OF CONSCIOUSNESS [None]
  - FALL [None]
  - MALAISE [None]
  - MYOCLONUS [None]
  - NERVOUSNESS [None]
  - STATUS EPILEPTICUS [None]
  - SUICIDE ATTEMPT [None]
  - UNRESPONSIVE TO STIMULI [None]
  - VOMITING PROJECTILE [None]
